FAERS Safety Report 21294680 (Version 1)
Quarter: 2022Q3

REPORT INFORMATION
  Report Type: Spontaneous
  Country: IT (occurrence: IT)
  Receive Date: 20220905
  Receipt Date: 20220905
  Transmission Date: 20221027
  Serious: Yes (Death)
  Sender: FDA-Public Use
  Company Number: None

PATIENT
  Age: 76 Year
  Sex: Male
  Weight: 72 kg

DRUGS (2)
  1. NIVOLUMAB [Suspect]
     Active Substance: NIVOLUMAB
     Indication: Renal cancer stage IV
     Dosage: NIVOLUMAB 3MG/KG Q3W
     Route: 042
     Dates: start: 20220725, end: 20220725
  2. IPILIMUMAB [Suspect]
     Active Substance: IPILIMUMAB
     Indication: Renal cancer stage IV
     Route: 042
     Dates: start: 20220725, end: 20220725

REACTIONS (1)
  - Connective tissue disorder [Fatal]

NARRATIVE: CASE EVENT DATE: 20220816
